FAERS Safety Report 7749684-0 (Version None)
Quarter: 2011Q3

REPORT INFORMATION
  Report Type: 
  Country: None (occurrence: None)
  Receive Date: 20110914
  Receipt Date: 20110906
  Transmission Date: 20111222
  Serious: Yes (Other)
  Sender: FDA-Public Use
  Company Number: GB-ROCHE-796647

PATIENT
  Sex: Female
  Weight: 63 kg

DRUGS (5)
  1. TOCILIZUMAB [Suspect]
     Indication: RHEUMATOID ARTHRITIS
     Route: 042
     Dates: start: 20101221
  2. TOCILIZUMAB [Suspect]
     Route: 042
     Dates: start: 20110802
  3. BLINDED TOCILIZUMAB [Suspect]
     Indication: RHEUMATOID ARTHRITIS
     Route: 042
  4. METHOTREXATE [Suspect]
     Indication: RHEUMATOID ARTHRITIS
     Route: 065
  5. METHOTREXATE [Suspect]
     Route: 065
     Dates: start: 20110906

REACTIONS (2)
  - JAUNDICE [None]
  - BLOOD BILIRUBIN INCREASED [None]
